FAERS Safety Report 9826093 (Version 3)
Quarter: 2014Q2

REPORT INFORMATION
  Report Type: Spontaneous
  Country: FR (occurrence: FR)
  Receive Date: 20140117
  Receipt Date: 20140616
  Transmission Date: 20141212
  Serious: Yes (Death, Hospitalization, Disabling)
  Sender: FDA-Public Use
  Company Number: FR-CELGENEUS-056-21660-14011538

PATIENT
  Age: 41 Year
  Sex: Male

DRUGS (3)
  1. ABRAXANE [Suspect]
     Indication: PANCREATIC CARCINOMA
     Route: 065
     Dates: start: 20131204, end: 20131204
  2. GEMCITABINE [Concomitant]
     Indication: PANCREATIC CARCINOMA
     Route: 065
     Dates: start: 20131204
  3. GEMCITABINE [Concomitant]
     Dosage: 1000 MILLIGRAM/SQ. METER
     Route: 065
     Dates: start: 20130925

REACTIONS (4)
  - Pancreatic carcinoma metastatic [Fatal]
  - General physical health deterioration [Not Recovered/Not Resolved]
  - Jaundice [Not Recovered/Not Resolved]
  - Anaemia [Recovered/Resolved]
